FAERS Safety Report 6649146-8 (Version None)
Quarter: 2010Q1

REPORT INFORMATION
  Report Type: 
  Country: None (occurrence: None)
  Receive Date: 20100324
  Receipt Date: 20100316
  Transmission Date: 20100710
  Serious: Yes (Hospitalization)
  Sender: FDA-Public Use
  Company Number: A0815833A

PATIENT
  Age: 44 Year
  Sex: Female
  Weight: 87.3 kg

DRUGS (5)
  1. AVANDIA [Suspect]
     Indication: DIABETES MELLITUS
     Route: 048
     Dates: start: 20000501, end: 20061001
  2. METFORMIN HCL [Concomitant]
  3. PREVACID [Concomitant]
  4. TRIVORA-21 [Concomitant]
  5. ASPIRIN [Concomitant]

REACTIONS (4)
  - ACUTE MYOCARDIAL INFARCTION [None]
  - ANXIETY [None]
  - CORONARY ARTERY DISEASE [None]
  - DEPRESSION [None]
